FAERS Safety Report 16895657 (Version 1)
Quarter: 2019Q4

REPORT INFORMATION
  Report Type: Spontaneous
  Country: US (occurrence: US)
  Receive Date: 20190814
  Receipt Date: 20190814
  Transmission Date: 20200122
  Serious: No
  Sender: FDA-Public Use
  Company Number: None

PATIENT
  Age: 68 Year
  Sex: Male
  Weight: 81.65 kg

DRUGS (1)
  1. TREMFYA [Suspect]
     Active Substance: GUSELKUMAB
     Indication: PSORIASIS
     Route: 058
     Dates: start: 201905

REACTIONS (9)
  - Rash macular [None]
  - Cyst [None]
  - Hypophagia [None]
  - Diarrhoea [None]
  - Syncope [None]
  - Abdominal discomfort [None]
  - Heart rate decreased [None]
  - Hernia [None]
  - Dysphagia [None]
